FAERS Safety Report 17065971 (Version 1)
Quarter: 2019Q4

REPORT INFORMATION
  Report Type: Spontaneous
  Country: US (occurrence: US)
  Receive Date: 20191122
  Receipt Date: 20191122
  Transmission Date: 20200122
  Serious: No
  Sender: FDA-Public Use
  Company Number: US-PERRIGO-19US007026

PATIENT
  Sex: Female

DRUGS (1)
  1. POLYETHYLENE GLYCOL 3350. [Suspect]
     Active Substance: POLYETHYLENE GLYCOL 3350
     Indication: CONSTIPATION
     Dosage: 17 G, BID
     Route: 048
     Dates: start: 20171129

REACTIONS (8)
  - Inappropriate schedule of product administration [Not Recovered/Not Resolved]
  - Incorrect product administration duration [Not Recovered/Not Resolved]
  - Abdominal pain [Unknown]
  - Drug ineffective [Unknown]
  - Abdominal discomfort [Unknown]
  - Bladder dilatation [Not Recovered/Not Resolved]
  - Abdominal distension [Unknown]
  - Gastrointestinal oedema [Unknown]

NARRATIVE: CASE EVENT DATE: 2017
